FAERS Safety Report 9331119 (Version 1)
Quarter: 2013Q2

REPORT INFORMATION
  Report Type: Report from Study
  Country: CA (occurrence: CA)
  Receive Date: 20130605
  Receipt Date: 20130605
  Transmission Date: 20140414
  Serious: Yes (Other)
  Sender: FDA-Public Use
  Company Number: CA-JNJFOC-20130522472

PATIENT
  Sex: Male
  Weight: 87.5 kg

DRUGS (1)
  1. REMICADE [Suspect]
     Indication: ANKYLOSING SPONDYLITIS
     Route: 042
     Dates: start: 20051212

REACTIONS (10)
  - Arthralgia [Unknown]
  - Hypokinesia [Unknown]
  - Hypoaesthesia [Unknown]
  - Pain [Unknown]
  - Musculoskeletal stiffness [Unknown]
  - Ocular hyperaemia [Unknown]
  - Photophobia [Unknown]
  - Tooth extraction [Unknown]
  - Infection [Recovered/Resolved]
  - Drug effect decreased [Unknown]
